FAERS Safety Report 18277836 (Version 1)
Quarter: 2020Q3

REPORT INFORMATION
  Report Type: Spontaneous
  Country: US (occurrence: US)
  Receive Date: 20200917
  Receipt Date: 20200917
  Transmission Date: 20201103
  Serious: No
  Sender: FDA-Public Use
  Company Number: US-PFIZER INC-2020359193

PATIENT
  Age: 70 Year
  Sex: Female

DRUGS (3)
  1. CEPHALEXIN [CEFALEXIN] [Suspect]
     Active Substance: CEPHALEXIN
     Dosage: UNK
  2. ANASTROZOLE. [Suspect]
     Active Substance: ANASTROZOLE
     Dosage: UNK
  3. EXEMESTANE. [Suspect]
     Active Substance: EXEMESTANE
     Dosage: 25 MG

REACTIONS (1)
  - Drug hypersensitivity [Unknown]
